FAERS Safety Report 8484791-9 (Version None)
Quarter: 2012Q3

REPORT INFORMATION
  Report Type: 
  Country: None (occurrence: None)
  Receive Date: 20120703
  Receipt Date: 20120625
  Transmission Date: 20120928
  Serious: Yes (Hospitalization)
  Sender: FDA-Public Use
  Company Number: US-BAYER-2012-064006

PATIENT
  Age: 33 Year
  Sex: Female
  Weight: 162.81 kg

DRUGS (11)
  1. YASMIN [Suspect]
  2. PREDNISONE [Concomitant]
     Dosage: UNK
     Dates: start: 20050127
  3. HYDROCHLOROTHIAZDE TAB [Concomitant]
     Dosage: UNK
     Dates: start: 20050207
  4. ALBUTEROL [Concomitant]
     Indication: DYSPNOEA
     Dosage: 90 MCG 2 PUFFS EVERY 4 HOURS AS NEEDED
     Dates: start: 20050207
  5. SINGULAIR [Concomitant]
     Dosage: 10 MG, DAILY
     Dates: start: 20050207
  6. LASIX [Concomitant]
     Dosage: 20 MG, DAILY
     Route: 048
     Dates: start: 20050207
  7. QVAR 40 [Concomitant]
     Dosage: 5 PUFFS, 2 X DAILY
     Dates: start: 20050207
  8. ZYRTEC [Concomitant]
     Dosage: 10 MG, DAILY
     Dates: start: 20050207
  9. TIAZAC [Concomitant]
     Dosage: 120 MG, DAILY
     Route: 048
     Dates: start: 20050207
  10. AMOXCL [Concomitant]
     Dosage: 875/125MG 2 X DAILY
     Route: 048
     Dates: start: 20050127
  11. ADVAIR DISKUS 100/50 [Concomitant]
     Dosage: 250-50MCG 2 X DAILY
     Dates: start: 20050207

REACTIONS (2)
  - PULMONARY EMBOLISM [None]
  - DEEP VEIN THROMBOSIS [None]
